FAERS Safety Report 7351099-4 (Version None)
Quarter: 2011Q1

REPORT INFORMATION
  Report Type: 
  Country: None (occurrence: None)
  Receive Date: 20110314
  Receipt Date: 20110309
  Transmission Date: 20110831
  Serious: Yes (Other)
  Sender: FDA-Public Use
  Company Number: US-PFIZER INC-2010083001

PATIENT
  Sex: Male

DRUGS (6)
  1. CHANTIX [Suspect]
     Indication: SMOKING CESSATION THERAPY
     Dosage: 40 MG, UNK
     Dates: start: 20080301, end: 20081201
  2. KLONOPIN [Concomitant]
     Indication: ANXIETY
     Dosage: UNK
     Dates: start: 20030101
  3. AMBIEN [Concomitant]
     Dosage: UNK
     Dates: start: 20030101
  4. NEXIUM [Concomitant]
     Indication: GASTRIC DISORDER
     Dosage: UNK
     Dates: start: 20030101
  5. ALBUTEROL [Concomitant]
     Dosage: UNK
     Dates: start: 20030101
  6. WELLBUTRIN [Concomitant]
     Indication: SMOKING CESSATION THERAPY
     Dosage: UNK
     Dates: start: 20030101, end: 20090101

REACTIONS (6)
  - SUICIDE ATTEMPT [None]
  - HYPOAESTHESIA [None]
  - AMNESIA [None]
  - PARAESTHESIA [None]
  - INTENTIONAL OVERDOSE [None]
  - DEPRESSION [None]
